FAERS Safety Report 7000856-2 (Version None)
Quarter: 2010Q3

REPORT INFORMATION
  Report Type: 
  Country: None (occurrence: None)
  Receive Date: 20100920
  Receipt Date: 20100910
  Transmission Date: 20110219
  Serious: Yes (Death, Other)
  Sender: FDA-Public Use
  Company Number: IT-GENZYME-CLOF-1001036

PATIENT
  Sex: Female
  Weight: 56 kg

DRUGS (3)
  1. EVOLTRA [Suspect]
     Indication: ACUTE MYELOID LEUKAEMIA
     Dosage: 22.5 MG/M2, QDX5
     Route: 042
     Dates: start: 20081119, end: 20081123
  2. CYTARABINE [Suspect]
     Indication: ACUTE MYELOID LEUKAEMIA
     Dosage: 1 G/M2, QDX5
     Route: 042
     Dates: start: 20081119, end: 20081123
  3. MYLOTARG [Suspect]
     Indication: ACUTE MYELOID LEUKAEMIA
     Dosage: 6 MG/M2, ONCE DAY 6
     Route: 042
     Dates: start: 20081124, end: 20081124

REACTIONS (2)
  - BONE MARROW FAILURE [None]
  - MULTI-ORGAN FAILURE [None]
